FAERS Safety Report 5586188-8 (Version None)
Quarter: 2007Q4

REPORT INFORMATION
  Report Type: 
  Country: None (occurrence: None)
  Receive Date: 20071203
  Receipt Date: 20070820
  Transmission Date: 20080405
  Serious: Yes (Other)
  Sender: FDA-Public Use
  Company Number: 2006124375

PATIENT
  Age: 39 Year
  Sex: Male
  Weight: 74 kg

DRUGS (4)
  1. ZYVOX [Suspect]
     Indication: EMPHYSEMA
     Dosage: 1200 MG (600 MG,2 IN 1 D),ORAL
     Route: 048
     Dates: start: 20060429, end: 20060727
  2. ZYVOX [Suspect]
     Indication: LUNG ABSCESS
     Dosage: 1200 MG (600 MG,2 IN 1 D),ORAL
     Route: 048
     Dates: start: 20060429, end: 20060727
  3. AUGMENTIN '125' [Concomitant]
  4. ZOSYN [Concomitant]

REACTIONS (3)
  - ANAEMIA [None]
  - NEUROPATHY PERIPHERAL [None]
  - VISUAL DISTURBANCE [None]
